FAERS Safety Report 8425006-7 (Version None)
Quarter: 2012Q2

REPORT INFORMATION
  Report Type: 
  Country: None (occurrence: None)
  Receive Date: 20120605
  Receipt Date: 20120605
  Transmission Date: 20120825
  Serious: Yes (Life-Threatening, Disabling, Other)
  Sender: FDA-Public Use
  Company Number: None

PATIENT
  Age: 15 Year
  Sex: Male
  Weight: 70.3075 kg

DRUGS (1)
  1. CLARAVIS [Suspect]
     Indication: ACNE
     Dosage: 40MG BID PO
     Route: 048
     Dates: start: 20120115, end: 20120329

REACTIONS (6)
  - URINARY TRACT INFECTION [None]
  - LIP DRY [None]
  - GLYCOSYLATED HAEMOGLOBIN INCREASED [None]
  - TYPE 1 DIABETES MELLITUS [None]
  - WEIGHT DECREASED [None]
  - BLOOD KETONE BODY INCREASED [None]
